FAERS Safety Report 17823867 (Version 1)
Quarter: 2020Q2

REPORT INFORMATION
  Report Type: Spontaneous
  Country: GB (occurrence: GB)
  Receive Date: 20200526
  Receipt Date: 20200526
  Transmission Date: 20200714
  Serious: Yes (Other)
  Sender: FDA-Public Use
  Company Number: GB-TEVA-2020-GB-1239885

PATIENT
  Age: 22 Year
  Sex: Male

DRUGS (1)
  1. CIPROFLOXACIN HYDROCHLORIDE. [Suspect]
     Active Substance: CIPROFLOXACIN HYDROCHLORIDE
     Indication: ORCHITIS
     Dosage: 500 MG
     Route: 048
     Dates: start: 20200217

REACTIONS (2)
  - Arthralgia [Not Recovered/Not Resolved]
  - Tendon disorder [Not Recovered/Not Resolved]

NARRATIVE: CASE EVENT DATE: 20200218
